FAERS Safety Report 4629655-3 (Version None)
Quarter: 2005Q2

REPORT INFORMATION
  Report Type: 
  Country: None (occurrence: None)
  Receive Date: 20050406
  Receipt Date: 20050317
  Transmission Date: 20051028
  Serious: Yes (Hospitalization)
  Sender: FDA-Public Use
  Company Number: US_0503114348

PATIENT
  Age: 32 Year
  Sex: Female

DRUGS (1)
  1. HUMULIN N [Suspect]
     Indication: DIABETES MELLITUS
     Dosage: 40 IU
     Dates: start: 19970101

REACTIONS (7)
  - DRUG INEFFECTIVE [None]
  - HYPERGLYCAEMIA [None]
  - NAUSEA [None]
  - POLYURIA [None]
  - SOMNOLENCE [None]
  - THIRST [None]
  - VOMITING [None]
